FAERS Safety Report 8581032-9 (Version None)
Quarter: 2012Q3

REPORT INFORMATION
  Report Type: 
  Country: None (occurrence: None)
  Receive Date: 20120809
  Receipt Date: 20120806
  Transmission Date: 20120928
  Serious: No
  Sender: FDA-Public Use
  Company Number: US-B.I. PHARMACEUTICALS,INC./RIDGEFIELD-2012-BP-17690BP

PATIENT
  Sex: Male

DRUGS (5)
  1. MUCINEX [Concomitant]
  2. RANITIDINE [Concomitant]
     Indication: GASTROOESOPHAGEAL REFLUX DISEASE
     Route: 048
     Dates: start: 20120724
  3. DEXILANT [Concomitant]
     Indication: ULCER
     Route: 048
     Dates: start: 20120724
  4. SPIRIVA [Suspect]
     Indication: CHRONIC OBSTRUCTIVE PULMONARY DISEASE
     Dosage: 18 MCG
     Route: 055
     Dates: start: 20120724
  5. VENTOLIN [Concomitant]
     Dates: start: 20120724

REACTIONS (3)
  - THROAT IRRITATION [None]
  - DEPRESSION [None]
  - PALPITATIONS [None]
